FAERS Safety Report 7939146-X (Version None)
Quarter: 2011Q4

REPORT INFORMATION
  Report Type: 
  Country: None (occurrence: None)
  Receive Date: 20111124
  Receipt Date: 20111115
  Transmission Date: 20120403
  Serious: Yes (Hospitalization)
  Sender: FDA-Public Use
  Company Number: US-ROCHE-1014217

PATIENT
  Age: 46 Year
  Sex: Female
  Weight: 70.45 kg

DRUGS (7)
  1. CISPLATIN [Suspect]
     Indication: CERVIX CARCINOMA
     Dosage: ON DAY 2.
     Route: 042
     Dates: start: 20110824
  2. LYRICA [Concomitant]
  3. PACLITAXEL [Suspect]
     Indication: CERVIX CARCINOMA
     Dosage: OVER 24 HOURS ON DAY 1
     Route: 042
     Dates: start: 20110824
  4. LEXAPRO [Concomitant]
  5. XANAX [Concomitant]
  6. AVASTIN [Suspect]
     Indication: CERVIX CARCINOMA
     Dosage: OVER 30-90 MIN ON DAY 2.
     Route: 042
     Dates: start: 20110824
  7. OXYCODONE HCL [Concomitant]

REACTIONS (3)
  - EMBOLISM [None]
  - INTERNATIONAL NORMALISED RATIO INCREASED [None]
  - PAIN IN EXTREMITY [None]
